FAERS Safety Report 5068306-3 (Version None)
Quarter: 2006Q3

REPORT INFORMATION
  Report Type: 
  Country: None (occurrence: None)
  Receive Date: 20060802
  Receipt Date: 20050725
  Transmission Date: 20061208
  Serious: No
  Sender: FDA-Public Use
  Company Number: US-BRISTOL-MYERS SQUIBB COMPANY-13049689

PATIENT
  Age: 8 Decade
  Sex: Male

DRUGS (5)
  1. COUMADIN [Suspect]
     Indication: ATRIAL FLUTTER
     Dates: start: 20040401
  2. HYALURONIC ACID [Suspect]
  3. DIOVAN [Concomitant]
  4. CELEBREX [Concomitant]
  5. LASIX [Concomitant]

REACTIONS (1)
  - INTERNATIONAL NORMALISED RATIO DECREASED [None]
